FAERS Safety Report 10985103 (Version 1)
Quarter: 2015Q2

REPORT INFORMATION
  Report Type: Spontaneous
  Country: US (occurrence: None)
  Receive Date: 20150403
  Receipt Date: 20150403
  Transmission Date: 20150821
  Serious: Yes (Death)
  Sender: FDA-Public Use
  Company Number: None

PATIENT
  Age: 17 Year
  Sex: Female

DRUGS (19)
  1. DEXAMETHASONE 16MG [Concomitant]
  2. MEGESTEROL (MEGACE0 [Concomitant]
  3. CYTARABINE. [Concomitant]
     Active Substance: CYTARABINE
  4. LASIX [Concomitant]
     Active Substance: FUROSEMIDE
  5. GABAPENTIN. [Concomitant]
     Active Substance: GABAPENTIN
  6. DEXAMETHASONE OPHTHALMIC 0.1% SOLUTION [Concomitant]
  7. ONDANSETRON (ZOFRAN) [Concomitant]
  8. ACYCLOVIR. [Concomitant]
     Active Substance: ACYCLOVIR
  9. POSACONAZOLE [Concomitant]
     Active Substance: POSACONAZOLE
  10. MYLOTARG [Suspect]
     Active Substance: GEMTUZUMAB OZOGAMICIN
     Indication: ACUTE MYELOID LEUKAEMIA
     Dosage: 3 MG/M2 IV X1 ?? DOSES
     Route: 042
     Dates: start: 20150209
  11. FLAGYL [Concomitant]
     Active Substance: METRONIDAZOLE\METRONIDAZOLE HYDROCHLORIDE
  12. ALBUMIN [Concomitant]
     Active Substance: ALBUMIN (HUMAN)
  13. PHYTONADIONE (VITAMIN K) [Concomitant]
  14. GEMTUZUMAB OZOGAMIYCIN [Concomitant]
  15. DIPHENHYDRAMINE (BENADRYL) [Concomitant]
  16. CEFEPIME [Concomitant]
     Active Substance: CEFEPIME\CEFEPIME HYDROCHLORIDE
  17. TYLENOL [Concomitant]
     Active Substance: ACETAMINOPHEN
  18. AMLODIPINE [Concomitant]
     Active Substance: AMLODIPINE BESYLATE
  19. FLUDARABINE [Concomitant]
     Active Substance: FLUDARABINE PHOSPHATE

REACTIONS (3)
  - Organ failure [None]
  - Sepsis [None]
  - Lobar pneumonia [None]

NARRATIVE: CASE EVENT DATE: 20150320
